FAERS Safety Report 8366142-3 (Version None)
Quarter: 2012Q2

REPORT INFORMATION
  Report Type: 
  Country: None (occurrence: None)
  Receive Date: 20120517
  Receipt Date: 20120510
  Transmission Date: 20120825
  Serious: Yes (Hospitalization)
  Sender: FDA-Public Use
  Company Number: US-ASTRAZENECA-2011SE41550

PATIENT
  Age: 53 Year
  Sex: Female

DRUGS (17)
  1. NEXIUM [Suspect]
     Route: 048
     Dates: start: 20040201, end: 20061101
  2. PEPTO-BISMOL  OTC [Concomitant]
     Dosage: AS NEEDED
  3. CRESTOR [Concomitant]
     Dates: start: 20100421
  4. NEXIUM [Suspect]
     Route: 048
     Dates: start: 20040201, end: 20061101
  5. METFORMIN HCL [Concomitant]
     Indication: DIABETES MELLITUS
  6. LISINOPRIL [Concomitant]
     Indication: HYPERTENSION
  7. EXFORGE [Concomitant]
     Dosage: 10/160 DAILY
     Dates: start: 20100421
  8. KEFLEX [Concomitant]
     Dates: start: 20100421
  9. DECONAMINE SR [Concomitant]
     Dosage: ONE BED TIME
     Dates: start: 20100421
  10. PHENERGAN [Concomitant]
     Dosage: 10 MG BED TIME
     Dates: start: 20100421
  11. NEXIUM [Suspect]
     Indication: GASTROOESOPHAGEAL REFLUX DISEASE
     Dosage: DAILY
     Route: 048
  12. AMLODIPINE BESYLATE [Concomitant]
     Indication: HYPERTENSION
  13. CLONIDINE [Concomitant]
     Dosage: DAILY
     Dates: start: 20100421
  14. NEXIUM [Suspect]
     Dosage: DAILY
     Route: 048
  15. LANTUS [Concomitant]
     Indication: DIABETES MELLITUS
  16. SIMVASTATIN [Concomitant]
     Indication: MEDICAL DIET
  17. VICODON [Concomitant]
     Indication: PAIN

REACTIONS (2)
  - UPPER LIMB FRACTURE [None]
  - DEPRESSION [None]
